FAERS Safety Report 22140130 (Version 1)
Quarter: 2023Q1

REPORT INFORMATION
  Report Type: Spontaneous
  Country: FR (occurrence: FR)
  Receive Date: 20230327
  Receipt Date: 20230327
  Transmission Date: 20230418
  Serious: Yes (Hospitalization, Other)
  Sender: FDA-Public Use
  Company Number: None

PATIENT
  Age: 13 Year
  Sex: Female
  Weight: 38.2 kg

DRUGS (3)
  1. VIMPAT [Suspect]
     Active Substance: LACOSAMIDE
     Indication: Infantile spasms
     Dosage: 150 MILLIGRAM EVERY 12 HOURS
     Route: 048
     Dates: start: 202208, end: 20230303
  2. CLOBAZAM [Concomitant]
     Active Substance: CLOBAZAM
     Indication: Infantile spasms
     Dosage: MATIN
     Route: 048
     Dates: start: 2020
  3. CLOBAZAM [Concomitant]
     Active Substance: CLOBAZAM
     Dosage: SOIR
     Route: 048
     Dates: start: 2020

REACTIONS (1)
  - Ventricular tachycardia [Recovered/Resolved]

NARRATIVE: CASE EVENT DATE: 20230228
